FAERS Safety Report 10219533 (Version 1)
Quarter: 2014Q2

REPORT INFORMATION
  Report Type: Spontaneous
  Country: US (occurrence: US)
  Receive Date: 20140605
  Receipt Date: 20140605
  Transmission Date: 20141212
  Serious: Yes (Death, Hospitalization)
  Sender: FDA-Public Use
  Company Number: US-GLAXOSMITHKLINE-A1075104A

PATIENT
  Sex: Female

DRUGS (1)
  1. ADVAIR [Suspect]
     Indication: CHRONIC OBSTRUCTIVE PULMONARY DISEASE
     Dosage: 2PUFF PER DAY
     Route: 055

REACTIONS (7)
  - Hepatic lesion [Fatal]
  - Lung neoplasm [Fatal]
  - Neoplasm [Fatal]
  - Metastases to liver [Fatal]
  - Respiratory failure [Fatal]
  - Pain [Unknown]
  - Therapeutic response decreased [Unknown]
